FAERS Safety Report 4388256-5 (Version None)
Quarter: 2004Q2

REPORT INFORMATION
  Report Type: 
  Country: None (occurrence: None)
  Receive Date: 20040629
  Receipt Date: 20040629
  Transmission Date: 20050107
  Serious: Yes (Other)
  Sender: FDA-Public Use
  Company Number: None

PATIENT
  Age: 37 Year
  Sex: Female
  Weight: 55.3388 kg

DRUGS (13)
  1. VALGANCICLARIR  ^VALCYTE TM^ [Suspect]
     Indication: CYTOMEGALOVIRUS INFECTION
     Dosage: 900 MG QD, PO, 450 MG QD PO
     Route: 048
     Dates: start: 20031201, end: 20040129
  2. VALGANCICLARIR  ^VALCYTE TM^ [Suspect]
     Indication: PANCREAS TRANSPLANT
     Dosage: 900 MG QD, PO, 450 MG QD PO
     Route: 048
     Dates: start: 20031201, end: 20040129
  3. VALGANCICLARIR  ^VALCYTE TM^ [Suspect]
     Indication: CYTOMEGALOVIRUS INFECTION
     Dosage: 900 MG QD, PO, 450 MG QD PO
     Route: 048
     Dates: start: 20040130, end: 20040210
  4. VALGANCICLARIR  ^VALCYTE TM^ [Suspect]
     Indication: PANCREAS TRANSPLANT
     Dosage: 900 MG QD, PO, 450 MG QD PO
     Route: 048
     Dates: start: 20040130, end: 20040210
  5. RAPAMUNE [Concomitant]
  6. PROGRAF [Concomitant]
  7. PREDNISONE [Concomitant]
  8. CELLCEPT [Concomitant]
  9. ZANTAC [Concomitant]
  10. BACTRIM [Concomitant]
  11. PLENDIL [Concomitant]
  12. LASIX [Concomitant]
  13. MULTI-VITAMINS [Concomitant]

REACTIONS (2)
  - LEUKOPENIA [None]
  - NEUTROPENIA [None]
